FAERS Safety Report 12587742 (Version 1)
Quarter: 2016Q3

REPORT INFORMATION
  Report Type: Spontaneous
  Country: None (occurrence: FI)
  Receive Date: 20160725
  Receipt Date: 20160725
  Transmission Date: 20161109
  Serious: Yes (Other)
  Sender: FDA-Public Use
  Company Number: FI-MEDAC PHARMA, INC.-1055487

PATIENT
  Age: 75 Year
  Sex: Female

DRUGS (12)
  1. PARACETAMOL [Concomitant]
     Active Substance: ACETAMINOPHEN
  2. VALACYCLOVIR HYDROCHLORIDE. [Concomitant]
     Active Substance: VALACYCLOVIR HYDROCHLORIDE
  3. SIMVASTATIN. [Concomitant]
     Active Substance: SIMVASTATIN
  4. CODEINE [Concomitant]
     Active Substance: CODEINE
  5. ESTRADIOL. [Concomitant]
     Active Substance: ESTRADIOL
  6. PANTOPRAZOLE SODIUM. [Concomitant]
     Active Substance: PANTOPRAZOLE SODIUM
  7. WARFARIN SODIUM. [Concomitant]
     Active Substance: WARFARIN SODIUM
  8. VALSARTAN. [Concomitant]
     Active Substance: VALSARTAN
  9. PROPRANOLOL HYDROCHLORIDE. [Concomitant]
     Active Substance: PROPRANOLOL HYDROCHLORIDE
  10. PREDNISOLONE. [Concomitant]
     Active Substance: PREDNISOLONE
  11. MOCLOBEMIDE [Concomitant]
     Active Substance: MOCLOBEMIDE
  12. METOJECT PEN [Suspect]
     Active Substance: METHOTREXATE
     Route: 058
     Dates: start: 20160426, end: 20160704

REACTIONS (6)
  - Alopecia [Recovered/Resolved]
  - Abdominal pain [Recovered/Resolved]
  - Herpes zoster [Unknown]
  - Weight decreased [Recovered/Resolved]
  - Decreased appetite [Recovered/Resolved]
  - Arrhythmia [Recovered/Resolved]

NARRATIVE: CASE EVENT DATE: 20160610
